FAERS Safety Report 9039538 (Version 1)
Quarter: 2013Q1

REPORT INFORMATION
  Report Type: Spontaneous
  Country: US (occurrence: None)
  Receive Date: 20130123
  Receipt Date: 20130123
  Transmission Date: 20140127
  Serious: Yes (Other)
  Sender: FDA-Public Use
  Company Number: None

PATIENT
  Sex: Female

DRUGS (1)
  1. HEALTHY SKIN ANTI-WRINKLE CREAM [Suspect]
     Dosage: UNK, TWICE, TOPICAL
     Route: 061
     Dates: start: 20130108, end: 20130109

REACTIONS (1)
  - Arrhythmia [None]
